FAERS Safety Report 5841024-7 (Version None)
Quarter: 2008Q3

REPORT INFORMATION
  Report Type: 
  Country: None (occurrence: None)
  Receive Date: 20080811
  Receipt Date: 20080711
  Transmission Date: 20090109
  Serious: Yes (Congenital Anomaly)
  Sender: FDA-Public Use
  Company Number: US-MERCK-0807USA02992

PATIENT
  Sex: Male

DRUGS (2)
  1. SINGULAIR [Suspect]
     Route: 064
     Dates: start: 20050101, end: 20051220
  2. KETEK [Suspect]
     Route: 064
     Dates: start: 20050312, end: 20050317

REACTIONS (2)
  - DRUG EXPOSURE DURING PREGNANCY [None]
  - MESOMELIA [None]
